FAERS Safety Report 25321602 (Version 1)
Quarter: 2025Q2

REPORT INFORMATION
  Report Type: Spontaneous
  Country: US (occurrence: US)
  Receive Date: 20250516
  Receipt Date: 20250516
  Transmission Date: 20250716
  Serious: Yes (Hospitalization)
  Sender: ELI LILLY AND COMPANY
  Company Number: US-ELI_LILLY_AND_COMPANY-US202505003204

PATIENT
  Age: 50 Year
  Sex: Male

DRUGS (2)
  1. TRULICITY [Suspect]
     Active Substance: DULAGLUTIDE
     Indication: Product used for unknown indication
     Route: 065
  2. JANUVIA [Concomitant]
     Active Substance: SITAGLIPTIN PHOSPHATE
     Indication: Product used for unknown indication
     Route: 065

REACTIONS (7)
  - Vomiting [Unknown]
  - Diarrhoea [Unknown]
  - Blood glucose increased [Unknown]
  - Apnoea [Unknown]
  - Weight increased [Unknown]
  - Rash macular [Unknown]
  - Gastrointestinal disorder [Unknown]
